FAERS Safety Report 9255794 (Version 2)
Quarter: 2013Q2

REPORT INFORMATION
  Report Type: Spontaneous
  Country: GB (occurrence: GB)
  Receive Date: 20130425
  Receipt Date: 20130524
  Transmission Date: 20140414
  Serious: Yes (Hospitalization)
  Sender: FDA-Public Use
  Company Number: GB-ASTRAZENECA-2013SE25551

PATIENT
  Sex: Male

DRUGS (2)
  1. SEROQUEL XL [Suspect]
     Route: 048
  2. ORAL MEDICATIONS [Suspect]
     Route: 048

REACTIONS (1)
  - Malaise [Unknown]
